FAERS Safety Report 10173541 (Version 1)
Quarter: 2014Q2

REPORT INFORMATION
  Report Type: Spontaneous
  Country: US (occurrence: US)
  Receive Date: 20140515
  Receipt Date: 20140515
  Transmission Date: 20141212
  Serious: No
  Sender: FDA-Public Use
  Company Number: US-PFIZER INC-2014133185

PATIENT
  Age: 36 Year
  Sex: Female
  Weight: 106.58 kg

DRUGS (3)
  1. LYRICA [Suspect]
     Indication: FIBROMYALGIA
     Dosage: 50 MG, 2X/DAY
     Dates: start: 201403
  2. LYRICA [Suspect]
     Dosage: 75 MG, 2X/DAY
     Dates: start: 2014, end: 20140512
  3. SYNTHROID [Concomitant]
     Indication: THYROID DISORDER
     Dosage: 50 UG, DAILY

REACTIONS (2)
  - Pain [Unknown]
  - Musculoskeletal stiffness [Unknown]
